FAERS Safety Report 19374815 (Version 1)
Quarter: 2021Q2

REPORT INFORMATION
  Report Type: Spontaneous
  Country: GB (occurrence: GB)
  Receive Date: 20210604
  Receipt Date: 20210604
  Transmission Date: 20210717
  Serious: Yes (Life-Threatening, Other)
  Sender: FDA-Public Use
  Company Number: GB-HRAPH01-2021000451

PATIENT
  Age: 44 Year
  Sex: Female
  Weight: 76.2 kg

DRUGS (3)
  1. FEXOFENADINE HYDROCHLORIDE. [Concomitant]
     Active Substance: FEXOFENADINE HYDROCHLORIDE
     Dosage: NOT REPORTED.
     Route: 065
  2. ELLAONE [Suspect]
     Active Substance: ULIPRISTAL ACETATE
     Dosage: ONE TABLET
     Route: 048
     Dates: start: 20210526, end: 20210526
  3. AVAMYS [Concomitant]
     Active Substance: FLUTICASONE FUROATE
     Dosage: NOT REPORTED.
     Route: 065

REACTIONS (3)
  - Psychotic disorder [Recovered/Resolved]
  - Paranoia [Recovered/Resolved]
  - Suicidal ideation [Recovered/Resolved]

NARRATIVE: CASE EVENT DATE: 20210526
